FAERS Safety Report 4410616-4 (Version None)
Quarter: 2004Q3

REPORT INFORMATION
  Report Type: 
  Country: None (occurrence: None)
  Receive Date: 20040726
  Receipt Date: 20040713
  Transmission Date: 20050211
  Serious: Yes (Death, Hospitalization, Disabling, Other)
  Sender: FDA-Public Use
  Company Number: 001-0719-M0100133

PATIENT
  Age: 58 Year
  Sex: Male

DRUGS (8)
  1. LOPID [Suspect]
     Indication: ILL-DEFINED DISORDER
     Dosage: 1200 MG (DAILY), ORAL
     Route: 048
     Dates: end: 20010515
  2. CERIVASTATIN SODIUM (CERIVASTATIN SODIUM) [Suspect]
     Indication: HYPERLIPIDAEMIA
     Dosage: 0.4 MG (DAILY), ORAL
     Route: 048
     Dates: start: 20010419, end: 20010515
  3. ISOSORBIDE MONONITRATE [Concomitant]
  4. METOPROLOL TARTRATE [Concomitant]
  5. ATORVASTATIN (ATORVASTATIN) [Concomitant]
  6. ACETYLSALICYLIC ACID SRT [Concomitant]
  7. METOPROLOL SUCCINATE [Concomitant]
  8. AMLODIPINE BESYLATE [Concomitant]

REACTIONS (3)
  - HAEMODIALYSIS [None]
  - RENAL FAILURE ACUTE [None]
  - RHABDOMYOLYSIS [None]
